FAERS Safety Report 5355184-8 (Version None)
Quarter: 2007Q2

REPORT INFORMATION
  Report Type: 
  Country: None (occurrence: None)
  Receive Date: 20070518
  Receipt Date: 20060605
  Transmission Date: 20071010
  Serious: Yes (Other)
  Sender: FDA-Public Use
  Company Number: HQWYE965406JUN06

PATIENT
  Age: 28 Year
  Sex: Female

DRUGS (1)
  1. ALESSE [Suspect]
     Indication: ORAL CONTRACEPTION
     Dosage: 1 TABLET 1X PER 1 DAY, ORAL
     Route: 048
     Dates: start: 20040601

REACTIONS (3)
  - BREAST PAIN [None]
  - PULMONARY EMBOLISM [None]
  - THROMBOSIS [None]
